FAERS Safety Report 4856324-7 (Version None)
Quarter: 2005Q4

REPORT INFORMATION
  Report Type: 
  Country: None (occurrence: None)
  Receive Date: 20051219
  Receipt Date: 20050203
  Transmission Date: 20060501
  Serious: No
  Sender: FDA-Public Use
  Company Number: US-GLAXOSMITHKLINE-A0544215A

PATIENT
  Age: 36 Year

DRUGS (2)
  1. NICODERM CQ [Suspect]
     Dates: start: 20041227, end: 20050110
  2. NICODERM CQ [Suspect]
     Dates: start: 20050110

REACTIONS (7)
  - APPLICATION SITE DERMATITIS [None]
  - APPLICATION SITE ERYTHEMA [None]
  - APPLICATION SITE PAIN [None]
  - APPLICATION SITE PRURITUS [None]
  - BONE PAIN [None]
  - MYALGIA [None]
  - TINNITUS [None]
